FAERS Safety Report 19183650 (Version 1)
Quarter: 2021Q2

REPORT INFORMATION
  Report Type: Spontaneous
  Country: NL (occurrence: NL)
  Receive Date: 20210427
  Receipt Date: 20210427
  Transmission Date: 20210717
  Serious: Yes (Disabling)
  Sender: FDA-Public Use
  Company Number: NL-TEVA-2021-NL-1904732

PATIENT
  Age: 80 Year
  Sex: Female

DRUGS (11)
  1. OMEPRAZOL CAPSULE MSR 20MG / BRAND NAME NOT SPECIFIED [Concomitant]
     Active Substance: OMEPRAZOLE
     Dosage: THERAPY START DATE; THERAPY END DATE : ASKED BUT UNKNOWN
  2. HYDROXYCHLOROQUINE TABLET OMHULD 200MG / BRAND NAME NOT SPECIFIED [Concomitant]
     Dosage: THERAPY START DATE; THERAPY END DATE : ASKED BUT UNKNOWN
  3. METHOTREXAAT INJVLST (METHOTREXATE) [Suspect]
     Active Substance: METHOTREXATE
     Indication: RHEUMATOID ARTHRITIS
     Dosage: 1 DF; 1XWEEK
     Dates: start: 2021, end: 20210210
  4. PREDNISOLON TABLET  5MG / BRAND NAME NOT SPECIFIED [Concomitant]
     Active Substance: PREDNISOLONE
     Dosage: THERAPY START DATE; THERAPY END DATE : ASKED BUT UNKNOWN
  5. ATORVASTATINE TABLET 40MG / BRAND NAME NOT SPECIFIED [Concomitant]
     Active Substance: ATORVASTATIN
     Dosage: THERAPY START DATE; THERAPY END DATE : ASKED BUT UNKNOWN
  6. FUSIDINEZUUR CREME 20MG/G / BRAND NAME NOT SPECIFIED [Concomitant]
     Dosage: THERAPY START DATE; THERAPY END DATE : ASKED BUT UNKNOWN
  7. COLECALCIFEROL DRANK  50.000IE/ML / BRAND NAME NOT SPECIFIED [Concomitant]
     Dosage: THERAPY START DATE; THERAPY END DATE : ASKED BUT UNKNOWN
  8. DIPYRIDAMOL CAPSULE MGA 200MG / BRAND NAME NOT SPECIFIED [Concomitant]
     Dosage: THERAPY START DATE; THERAPY END DATE : ASKED BUT UNKNOWN
  9. CICLOPIROX CREME 10MG/G / BRAND NAME NOT SPECIFIED [Concomitant]
     Dosage: THERAPY START DATE; THERAPY END DATE : ASKED BUT UNKNOWN
  10. IRBESARTAN TABLET 150MG / BRAND NAME NOT SPECIFIED [Concomitant]
     Active Substance: IRBESARTAN
     Dosage: THERAPY START DATE; THERAPY END DATE : ASKED BUT UNKNOWN
  11. ACETYLSALICYLZUUR TABLET  80MG / BRAND NAME NOT SPECIFIED [Concomitant]
     Active Substance: ASPIRIN
     Dosage: THERAPY START DATE; THERAPY END DATE : ASKED BUT UNKNOWN

REACTIONS (2)
  - Paralysis [Not Recovered/Not Resolved]
  - Spinal cord haemorrhage [Not Recovered/Not Resolved]

NARRATIVE: CASE EVENT DATE: 20210209
